FAERS Safety Report 23688707 (Version 1)
Quarter: 2024Q1

REPORT INFORMATION
  Report Type: Spontaneous
  Country: ES (occurrence: ES)
  Receive Date: 20240329
  Receipt Date: 20240329
  Transmission Date: 20240409
  Serious: Yes (Other)
  Sender: FDA-Public Use
  Company Number: None

PATIENT
  Age: 73 Year
  Sex: Male

DRUGS (2)
  1. CLOZAPINE [Interacting]
     Active Substance: CLOZAPINE
     Indication: Psychotic disorder
     Dosage: UNK
     Route: 048
     Dates: start: 2000, end: 20240222
  2. PAXLOVID [Interacting]
     Active Substance: NIRMATRELVIR\RITONAVIR
     Indication: COVID-19
     Dosage: UNK
     Route: 048
     Dates: start: 20240221, end: 20240227

REACTIONS (2)
  - Drug interaction [Recovered/Resolved]
  - Somnolence [Recovered/Resolved]

NARRATIVE: CASE EVENT DATE: 20240221
